FAERS Safety Report 10509523 (Version 2)
Quarter: 2014Q4

REPORT INFORMATION
  Report Type: Spontaneous
  Country: SK (occurrence: SK)
  Receive Date: 20141009
  Receipt Date: 20141021
  Transmission Date: 20150528
  Serious: Yes (Death, Life-Threatening, Hospitalization)
  Sender: FDA-Public Use
  Company Number: SK-BRISTOL-MYERS SQUIBB COMPANY-21470349

PATIENT
  Age: 80 Year
  Sex: Female

DRUGS (12)
  1. GLIBENCLAMIDE [Concomitant]
     Active Substance: GLYBURIDE
  2. ATORIS [Concomitant]
     Active Substance: ATORVASTATIN CALCIUM
  3. MOXONIDINE [Concomitant]
     Active Substance: MOXONIDINE
  4. GLUCOSE [Concomitant]
     Active Substance: DEXTROSE
  5. CAVINTON [Concomitant]
     Active Substance: VINPOCETINE
  6. ELIQUIS [Suspect]
     Active Substance: APIXABAN
     Indication: CEREBROVASCULAR ACCIDENT PROPHYLAXIS
     Route: 048
     Dates: start: 201407, end: 20140911
  7. AMIODARONE [Concomitant]
     Active Substance: AMIODARONE
  8. TRITACE [Concomitant]
     Active Substance: RAMIPRIL
  9. VIGANTOLETTEN [Concomitant]
     Active Substance: CHOLECALCIFEROL
  10. FRESH FROZEN PLASMA [Concomitant]
     Active Substance: HUMAN PLASMA
  11. CORDARONE [Concomitant]
     Active Substance: AMIODARONE HYDROCHLORIDE
  12. NOVALGIN [Concomitant]
     Active Substance: METAMIZOLE SODIUM

REACTIONS (2)
  - Cardiogenic shock [Fatal]
  - Cerebral haemorrhage [Not Recovered/Not Resolved]

NARRATIVE: CASE EVENT DATE: 20140911
